FAERS Safety Report 18341749 (Version 1)
Quarter: 2020Q4

REPORT INFORMATION
  Report Type: Report from Study
  Country: US (occurrence: US)
  Receive Date: 20201005
  Receipt Date: 20201005
  Transmission Date: 20210113
  Serious: Yes (Death, Disabling)
  Sender: FDA-Public Use
  Company Number: US-EMD SERONO-9151393

PATIENT
  Sex: Male

DRUGS (1)
  1. REBIF [Suspect]
     Active Substance: INTERFERON BETA-1A
     Indication: MULTIPLE SCLEROSIS
     Route: 058
     Dates: start: 20191209, end: 2020

REACTIONS (4)
  - Cachexia [Fatal]
  - Bedridden [Unknown]
  - Multiple sclerosis [Fatal]
  - Decubitus ulcer [Recovering/Resolving]
